FAERS Safety Report 4923272-3 (Version None)
Quarter: 2006Q1

REPORT INFORMATION
  Report Type: 
  Country: None (occurrence: None)
  Receive Date: 20060227
  Receipt Date: 20060209
  Transmission Date: 20060701
  Serious: Yes (Hospitalization)
  Sender: FDA-Public Use
  Company Number: FR-RB-2766-2006

PATIENT
  Age: 57 Year
  Sex: Male

DRUGS (5)
  1. BUPRENORPHINE HCL [Suspect]
     Indication: DRUG USE FOR UNKNOWN INDICATION
     Route: 060
     Dates: end: 20051106
  2. LORZAAR PLUS [Concomitant]
     Indication: DRUG USE FOR UNKNOWN INDICATION
     Dosage: LOSARTAN POTASSIUM 100 MG / HYDROCHLOROTHIAZIDE 25 MG
     Route: 048
  3. URAPIDIL [Concomitant]
     Indication: DRUG USE FOR UNKNOWN INDICATION
     Route: 048
  4. HEXAQUINE [Concomitant]
     Indication: DRUG USE FOR UNKNOWN INDICATION
     Dosage: QUININE BENZOATE 120 MG / THIAMINE CHLORHYDRATE 32 MG
     Route: 048
  5. PANTOPRAZOLE [Concomitant]
     Indication: DRUG USE FOR UNKNOWN INDICATION
     Route: 048

REACTIONS (3)
  - LOSS OF CONSCIOUSNESS [None]
  - OVERDOSE [None]
  - PNEUMONIA ASPIRATION [None]
